FAERS Safety Report 4425441-8 (Version None)
Quarter: 2004Q3

REPORT INFORMATION
  Report Type: 
  Country: None (occurrence: None)
  Receive Date: 20040813
  Receipt Date: 20040517
  Transmission Date: 20050211
  Serious: Yes (Other)
  Sender: FDA-Public Use
  Company Number: US-ROCHE-368124

PATIENT
  Age: 37 Year
  Sex: Female

DRUGS (2)
  1. ACCUTANE [Suspect]
     Indication: ROSACEA
     Route: 048
     Dates: start: 19970615, end: 20040515
  2. LO/OVRAL [Suspect]
     Route: 048
     Dates: start: 19890615

REACTIONS (1)
  - HEPATIC ADENOMA [None]
